FAERS Safety Report 5706630-9 (Version None)
Quarter: 2008Q2

REPORT INFORMATION
  Report Type: 
  Country: None (occurrence: None)
  Receive Date: 20080414
  Receipt Date: 19980112
  Transmission Date: 20081010
  Serious: Yes (Life-Threatening)
  Sender: FDA-Public Use
  Company Number: 2004IC000374

PATIENT
  Age: 70 Year
  Sex: Male

DRUGS (6)
  1. MESTINON [Suspect]
     Indication: MYASTHENIA GRAVIS
     Dosage: 480 MG; PO
     Route: 048
     Dates: start: 19970801
  2. RETINEC [Concomitant]
  3. GLUCOPHAGE [Concomitant]
  4. STILNOX [Concomitant]
  5. FLAXIPARINE [Concomitant]
  6. TEGELINE [Concomitant]

REACTIONS (12)
  - BACTERIAL INFECTION [None]
  - BRONCHITIS [None]
  - CARDIAC ARREST [None]
  - CONDITION AGGRAVATED [None]
  - CYANOSIS [None]
  - DYSPNOEA [None]
  - HYPOXIA [None]
  - MYASTHENIA GRAVIS [None]
  - OBSTRUCTIVE AIRWAYS DISORDER [None]
  - PYREXIA [None]
  - RIB FRACTURE [None]
  - SLEEP DISORDER [None]
